FAERS Safety Report 7925916-0 (Version None)
Quarter: 2011Q4

REPORT INFORMATION
  Report Type: 
  Country: None (occurrence: None)
  Receive Date: 20111118
  Receipt Date: 20110414
  Transmission Date: 20120403
  Serious: No
  Sender: FDA-Public Use
  Company Number: US-AMGEN-USASP2011019924

PATIENT
  Age: 16 Year
  Sex: Male

DRUGS (3)
  1. ENBREL [Suspect]
     Dates: start: 20110322
  2. ENBREL [Suspect]
     Indication: JUVENILE ARTHRITIS
     Dosage: 25 MG, 2 TIMES/WK
     Dates: start: 20110315
  3. TREXALL [Concomitant]
     Dosage: UNK UNK, QWK
     Dates: start: 20110201

REACTIONS (3)
  - INJECTION SITE HAEMATOMA [None]
  - INJECTION SITE MASS [None]
  - SINUSITIS [None]
